FAERS Safety Report 6882967-5 (Version None)
Quarter: 2010Q3

REPORT INFORMATION
  Report Type: 
  Country: None (occurrence: None)
  Receive Date: 20100702
  Receipt Date: 20100329
  Transmission Date: 20110219
  Serious: Yes (Other)
  Sender: FDA-Public Use
  Company Number: 2010040713

PATIENT
  Age: 64 Year
  Sex: Female
  Weight: 56 kg

DRUGS (2)
  1. ZOLOFT [Suspect]
     Indication: NEURALGIA
     Dosage: 25 MG, 1X/DAY, ORAL
     Route: 048
     Dates: start: 20070101, end: 20070101
  2. CELEXA [Suspect]
     Dates: start: 20090101

REACTIONS (7)
  - FATIGUE [None]
  - MYALGIA [None]
  - POOR QUALITY SLEEP [None]
  - RASH [None]
  - SLEEP DISORDER [None]
  - SOMNOLENCE [None]
  - TREMOR [None]
